FAERS Safety Report 4783801-X (Version None)
Quarter: 2005Q3

REPORT INFORMATION
  Report Type: 
  Country: None (occurrence: None)
  Receive Date: 20050928
  Receipt Date: 20050913
  Transmission Date: 20060218
  Serious: Yes (Hospitalization)
  Sender: FDA-Public Use
  Company Number: EWC050945863

PATIENT
  Age: 18 Year
  Sex: Male

DRUGS (3)
  1. ZYPREXA [Suspect]
     Indication: BIPOLAR DISORDER
     Dosage: 10 MG/2 DAY
     Route: 048
     Dates: start: 20050824, end: 20050906
  2. TEGRETOL [Concomitant]
  3. LITHIUM [Concomitant]

REACTIONS (5)
  - EYE DISORDER [None]
  - HYPERSENSITIVITY [None]
  - RASH ERYTHEMATOUS [None]
  - RASH MACULAR [None]
  - SEPSIS [None]
